FAERS Safety Report 13856407 (Version 2)
Quarter: 2018Q1

REPORT INFORMATION
  Report Type: Spontaneous
  Country: US (occurrence: US)
  Receive Date: 20170810
  Receipt Date: 20180328
  Transmission Date: 20180508
  Serious: No
  Sender: FDA-Public Use
  Company Number: PHEH2017US024947

PATIENT
  Sex: Female

DRUGS (2)
  1. VOTRIENT [Suspect]
     Active Substance: PAZOPANIB HYDROCHLORIDE
     Dosage: UNK, BID (2 IN THE AM AND 2 IN THE PM TO BE TAKEN 2 HOURS AFTER EATING)
     Route: 065
  2. VOTRIENT [Suspect]
     Active Substance: PAZOPANIB HYDROCHLORIDE
     Indication: RENAL CANCER
     Dosage: 200 MG, QD
     Route: 048

REACTIONS (9)
  - Erythema [Unknown]
  - Pulmonary mass [Unknown]
  - Alopecia [Unknown]
  - Diarrhoea [Recovered/Resolved]
  - Vulvovaginal burning sensation [Unknown]
  - Anorectal discomfort [Unknown]
  - Contusion [Unknown]
  - Hair colour changes [Not Recovered/Not Resolved]
  - Peripheral swelling [Unknown]
